FAERS Safety Report 17740155 (Version 1)
Quarter: 2020Q2

REPORT INFORMATION
  Report Type: Spontaneous
  Country: TR (occurrence: TR)
  Receive Date: 20200504
  Receipt Date: 20200504
  Transmission Date: 20200714
  Serious: Yes (Other)
  Sender: FDA-Public Use
  Company Number: TR-BAUSCH-BL-2020-012393

PATIENT
  Age: 47 Year
  Sex: Female

DRUGS (14)
  1. AZATHIOPRINE. [Suspect]
     Active Substance: AZATHIOPRINE
     Indication: HERMANSKY-PUDLAK SYNDROME
     Route: 065
  2. AZATHIOPRINE. [Suspect]
     Active Substance: AZATHIOPRINE
     Indication: CROHN^S DISEASE
  3. ADALIMUMAB [Suspect]
     Active Substance: ADALIMUMAB
     Indication: HERMANSKY-PUDLAK SYNDROME
     Route: 065
  4. ISONIAZID. [Concomitant]
     Active Substance: ISONIAZID
     Indication: COLITIS
  5. ETHAMBUTOL [Concomitant]
     Active Substance: ETHAMBUTOL HYDROCHLORIDE
     Indication: COLITIS
  6. MESALAZINE [Suspect]
     Active Substance: MESALAMINE
     Indication: CROHN^S DISEASE
  7. ISONIAZID. [Concomitant]
     Active Substance: ISONIAZID
     Indication: TUBERCULOSIS
  8. ETHAMBUTOL [Concomitant]
     Active Substance: ETHAMBUTOL HYDROCHLORIDE
     Indication: COLITIS
  9. STREPTOMYCIN [Concomitant]
     Active Substance: STREPTOMYCIN SULFATE
     Indication: COLITIS
  10. ADALIMUMAB [Suspect]
     Active Substance: ADALIMUMAB
     Indication: CROHN^S DISEASE
     Dosage: REDUCED INTERVALS
     Route: 065
  11. STREPTOMYCIN [Concomitant]
     Active Substance: STREPTOMYCIN SULFATE
     Indication: COLITIS
  12. MESALAZINE [Suspect]
     Active Substance: MESALAMINE
     Indication: HERMANSKY-PUDLAK SYNDROME
     Route: 065
  13. RIFAMPICIN [Concomitant]
     Active Substance: RIFAMPIN
     Indication: TUBERCULOSIS
  14. RIFAMPICIN [Concomitant]
     Active Substance: RIFAMPIN
     Indication: COLITIS

REACTIONS (2)
  - Symptom recurrence [Not Recovered/Not Resolved]
  - Crohn^s disease [Not Recovered/Not Resolved]
